FAERS Safety Report 7073796-0 (Version None)
Quarter: 2010Q4

REPORT INFORMATION
  Report Type: 
  Country: None (occurrence: None)
  Receive Date: 20101029
  Receipt Date: 20100914
  Transmission Date: 20110411
  Serious: No
  Sender: FDA-Public Use
  Company Number: A0876339A

PATIENT
  Age: 66 Year
  Sex: Female

DRUGS (10)
  1. ADVAIR DISKUS 100/50 [Suspect]
     Indication: CHRONIC OBSTRUCTIVE PULMONARY DISEASE
     Dosage: 1PUFF TWICE PER DAY
     Route: 055
     Dates: start: 20060401
  2. MORPHINE SULFATE [Concomitant]
  3. ATIVAN [Concomitant]
  4. LEXAPRO [Concomitant]
  5. PHENAZOPYRIDINE HCL TAB [Concomitant]
  6. PREDNISONE [Concomitant]
  7. LASIX [Concomitant]
  8. PRILOSEC [Concomitant]
  9. VENTOLIN [Concomitant]
  10. VITAMIN D [Concomitant]

REACTIONS (2)
  - DYSPNOEA [None]
  - PRODUCT QUALITY ISSUE [None]
